FAERS Safety Report 5945046-7 (Version None)
Quarter: 2008Q4

REPORT INFORMATION
  Report Type: 
  Country: None (occurrence: None)
  Receive Date: 20081021
  Receipt Date: 20080125
  Transmission Date: 20090506
  Serious: Yes (Hospitalization, Other)
  Sender: FDA-Public Use
  Company Number: US-WYE-H02320608

PATIENT
  Age: 76 Year
  Sex: Female
  Weight: 81.72 kg

DRUGS (5)
  1. PREMARIN [Suspect]
     Indication: HOT FLUSH
     Dosage: 0.625 MG 1X PER 1 DAY, ORAL
     Route: 048
     Dates: start: 19840101, end: 20050101
  2. CELEBREX [Concomitant]
  3. ASPIRIN [Concomitant]
  4. DIOVAN [Concomitant]
  5. PLAVIX [Concomitant]

REACTIONS (4)
  - BACK PAIN [None]
  - BREAST CALCIFICATIONS [None]
  - BREAST CANCER [None]
  - DRUG WITHDRAWAL SYNDROME [None]
